FAERS Safety Report 7821560-4 (Version None)
Quarter: 2011Q4

REPORT INFORMATION
  Report Type: 
  Country: None (occurrence: None)
  Receive Date: 20111018
  Receipt Date: 20110215
  Transmission Date: 20120403
  Serious: No
  Sender: FDA-Public Use
  Company Number: US-ASTRAZENECA-2010SE44485

PATIENT
  Age: 65 Year
  Sex: Female

DRUGS (2)
  1. RESCUE INHALER [Concomitant]
  2. SYMBICORT [Suspect]
     Indication: BRONCHITIS
     Dosage: 160/4.5 UG TWO PUFFS BID
     Route: 055
     Dates: start: 20100201

REACTIONS (1)
  - CONDITION AGGRAVATED [None]
